FAERS Safety Report 8714722 (Version 2)
Quarter: 2012Q4

REPORT INFORMATION
  Report Type: Report from Study
  Country: US (occurrence: US)
  Receive Date: 20120809
  Receipt Date: 20121115
  Transmission Date: 20130627
  Serious: Yes (Other)
  Sender: FDA-Public Use
  Company Number: US-US-EMD SERONO, INC.-7152210

PATIENT
  Sex: Male

DRUGS (2)
  1. REBIF [Suspect]
     Indication: MULTIPLE SCLEROSIS
     Route: 058
     Dates: start: 2008, end: 201112
  2. REBIF [Suspect]
     Route: 058
     Dates: start: 20120711

REACTIONS (2)
  - Prostate cancer [Not Recovered/Not Resolved]
  - Influenza like illness [Unknown]
